FAERS Safety Report 8578494 (Version 6)
Quarter: 2014Q1

REPORT INFORMATION
  Report Type: Spontaneous
  Country: US (occurrence: US)
  Receive Date: 20120524
  Receipt Date: 20140102
  Transmission Date: 20141002
  Serious: Yes (Hospitalization, Disabling, Other)
  Sender: FDA-Public Use
  Company Number: US-009507513-1205USA02845

PATIENT
  Sex: Female
  Weight: 75 kg

DRUGS (10)
  1. FOSAMAX [Suspect]
     Indication: OSTEOPOROSIS
     Dosage: 70 MG, QW
     Route: 048
     Dates: start: 2003, end: 2008
  2. BONIVA [Suspect]
     Indication: OSTEOPOROSIS
     Dosage: 150 MG, QM
     Route: 048
     Dates: start: 20070904, end: 2011
  3. VITAMIN E [Concomitant]
     Dosage: 400 MG, UNK
     Dates: start: 1992
  4. LASIX (FUROSEMIDE) [Concomitant]
     Indication: OEDEMA PERIPHERAL
  5. LASIX (FUROSEMIDE) [Concomitant]
     Indication: HYPERTENSION
  6. METFORMIN [Concomitant]
     Indication: DIABETES MELLITUS
  7. COUMADIN [Concomitant]
     Indication: DEEP VEIN THROMBOSIS
  8. POTASSIUM CHLORIDE [Concomitant]
     Indication: HYPOKALAEMIA
  9. CALCIUM (UNSPECIFIED) [Concomitant]
  10. ATACAND [Concomitant]
     Indication: HYPERTENSION

REACTIONS (16)
  - Intramedullary rod insertion [Recovering/Resolving]
  - Intramedullary rod insertion [Recovering/Resolving]
  - Osteoporosis [Not Recovered/Not Resolved]
  - Stress fracture [Not Recovered/Not Resolved]
  - Femur fracture [Not Recovered/Not Resolved]
  - Low turnover osteopathy [Not Recovered/Not Resolved]
  - Renal failure acute [Unknown]
  - Atypical femur fracture [Recovering/Resolving]
  - Femur fracture [Recovering/Resolving]
  - Tooth disorder [Unknown]
  - Blood cholesterol increased [Unknown]
  - Local swelling [Unknown]
  - Osteoarthritis [Unknown]
  - Haemangioma of liver [Unknown]
  - Upper respiratory tract infection [Unknown]
  - Hypercalcaemia [Unknown]
